FAERS Safety Report 8622550-4 (Version None)
Quarter: 2012Q3

REPORT INFORMATION
  Report Type: 
  Country: None (occurrence: None)
  Receive Date: 20120827
  Receipt Date: 20120821
  Transmission Date: 20120928
  Serious: Yes (Death)
  Sender: FDA-Public Use
  Company Number: JP-ELI_LILLY_AND_COMPANY-JP201208006579

PATIENT
  Age: 85 Year
  Sex: Female

DRUGS (3)
  1. PANVITAN [Concomitant]
  2. FRESMIN [Concomitant]
  3. ALIMTA [Suspect]
     Indication: NON-SMALL CELL LUNG CANCER
     Dosage: 600 MG, UNK
     Route: 042
     Dates: start: 20120816

REACTIONS (2)
  - INTERSTITIAL LUNG DISEASE [None]
  - RESPIRATORY FAILURE [None]
